FAERS Safety Report 8989153 (Version 4)
Quarter: 2013Q1

REPORT INFORMATION
  Report Type: Spontaneous
  Country: BR (occurrence: BR)
  Receive Date: 20121227
  Receipt Date: 20130214
  Transmission Date: 20140127
  Serious: Yes (Hospitalization)
  Sender: FDA-Public Use
  Company Number: BR-ALLERGAN-1217692US

PATIENT
  Age: 92 Year
  Sex: Female

DRUGS (6)
  1. ZYPRED [Suspect]
     Indication: EYE INFLAMMATION
     Dosage: 1 DROP PER EYE 4 TIMES PER DAY
     Route: 047
     Dates: start: 20121210, end: 20121216
  2. EXILON [Concomitant]
     Indication: PRODUCT USED FOR UNKNOWN INDICATION
     Dosage: UNK
     Dates: start: 2003
  3. VITORIN [Concomitant]
     Indication: PRODUCT USED FOR UNKNOWN INDICATION
     Dosage: UNK
     Dates: start: 2003
  4. OMEPRAZOLE [Concomitant]
     Indication: PRODUCT USED FOR UNKNOWN INDICATION
     Dosage: UNK
     Dates: start: 2003
  5. PURAN T4 [Concomitant]
     Indication: PRODUCT USED FOR UNKNOWN INDICATION
     Dosage: UNK
     Dates: start: 2003
  6. DIOVAN [Concomitant]
     Indication: PRODUCT USED FOR UNKNOWN INDICATION
     Dosage: UNK
     Dates: start: 2003

REACTIONS (8)
  - Malaise [Recovering/Resolving]
  - Chills [Recovering/Resolving]
  - Haematemesis [Recovering/Resolving]
  - Nephrolithiasis [Recovering/Resolving]
  - Renal failure [Recovering/Resolving]
  - Pallor [Recovering/Resolving]
  - Dry mouth [Recovering/Resolving]
  - Agitation [Recovering/Resolving]
